FAERS Safety Report 4409824-8 (Version None)
Quarter: 2004Q3

REPORT INFORMATION
  Report Type: 
  Country: None (occurrence: None)
  Receive Date: 20040727
  Receipt Date: 20040727
  Transmission Date: 20050211
  Serious: Yes (Other)
  Sender: FDA-Public Use
  Company Number: None

PATIENT
  Age: 37 Year
  Sex: Female
  Weight: 71.2147 kg

DRUGS (1)
  1. LEVAQUIN [Suspect]
     Dosage: ONE PILL  PER DAY  ORAL
     Route: 048
     Dates: start: 20040714, end: 20040718

REACTIONS (3)
  - ARTHRALGIA [None]
  - JOINT STIFFNESS [None]
  - MOVEMENT DISORDER [None]
